FAERS Safety Report 15251674 (Version 1)
Quarter: 2018Q4

REPORT INFORMATION
  Report Type: Spontaneous
  Country: US (occurrence: US)
  Receive Date: 20180807
  Receipt Date: 20180807
  Transmission Date: 20190204
  Serious: No
  Sender: FDA-Public Use
  Company Number: US-LEADING PHARMA-2053398

PATIENT
  Age: 60 Year
  Sex: Female

DRUGS (1)
  1. LORAZEPAM. [Suspect]
     Active Substance: LORAZEPAM
     Indication: ANXIETY
     Route: 048

REACTIONS (4)
  - Swollen tongue [Recovered/Resolved]
  - Paraesthesia oral [None]
  - Lip swelling [Recovered/Resolved]
  - Hypoaesthesia oral [None]
